FAERS Safety Report 19484948 (Version 1)
Quarter: 2021Q3

REPORT INFORMATION
  Report Type: Spontaneous
  Country: US (occurrence: US)
  Receive Date: 20210701
  Receipt Date: 20210701
  Transmission Date: 20211014
  Serious: No
  Sender: FDA-Public Use
  Company Number: US-SA-2021SA215122

PATIENT
  Age: 15 Year
  Sex: Male

DRUGS (2)
  1. DUPIXENT [Suspect]
     Active Substance: DUPILUMAB
     Indication: DERMATITIS ATOPIC
     Dosage: 1400 MG
     Route: 058
     Dates: start: 202106, end: 202106
  2. DUPIXENT [Suspect]
     Active Substance: DUPILUMAB
     Dosage: 200 MG, QOW
     Route: 058
     Dates: start: 202106

REACTIONS (7)
  - Condition aggravated [Unknown]
  - Eczema [Unknown]
  - Rhinitis allergic [Unknown]
  - Eye pruritus [Unknown]
  - Dry eye [Unknown]
  - Lethargy [Unknown]
  - Rash [Unknown]

NARRATIVE: CASE EVENT DATE: 202106
